FAERS Safety Report 22258840 (Version 1)
Quarter: 2023Q2

REPORT INFORMATION
  Report Type: Spontaneous
  Country: US (occurrence: US)
  Receive Date: 20230427
  Receipt Date: 20230427
  Transmission Date: 20230721
  Serious: Yes (Other)
  Sender: FDA-Public Use
  Company Number: US-drreddys-LIT/USA/23/0164335

PATIENT
  Sex: Female

DRUGS (12)
  1. CIPROFLOXACIN [Suspect]
     Active Substance: CIPROFLOXACIN
     Indication: Crohn^s disease
     Route: 048
  2. CIPROFLOXACIN [Suspect]
     Active Substance: CIPROFLOXACIN
     Indication: Metastasis
  3. SILVER SULFADIAZINE [Suspect]
     Active Substance: SILVER SULFADIAZINE
     Indication: Crohn^s disease
  4. SILVER SULFADIAZINE [Suspect]
     Active Substance: SILVER SULFADIAZINE
     Indication: Metastasis
  5. INFLIXIMAB [Suspect]
     Active Substance: INFLIXIMAB
     Indication: Crohn^s disease
  6. INFLIXIMAB [Suspect]
     Active Substance: INFLIXIMAB
     Indication: Metastasis
  7. RIFABUTIN [Suspect]
     Active Substance: RIFABUTIN
     Indication: Crohn^s disease
  8. RIFABUTIN [Suspect]
     Active Substance: RIFABUTIN
     Indication: Metastasis
  9. RIFAXIMIN [Suspect]
     Active Substance: RIFAXIMIN
     Indication: Crohn^s disease
  10. RIFAXIMIN [Suspect]
     Active Substance: RIFAXIMIN
     Indication: Metastasis
  11. METRONIDAZOLE [Suspect]
     Active Substance: METRONIDAZOLE
     Indication: Crohn^s disease
     Route: 048
  12. METRONIDAZOLE [Suspect]
     Active Substance: METRONIDAZOLE
     Indication: Metastasis

REACTIONS (1)
  - Drug ineffective for unapproved indication [Unknown]
